FAERS Safety Report 17911343 (Version 1)
Quarter: 2020Q2

REPORT INFORMATION
  Report Type: Spontaneous
  Country: US (occurrence: US)
  Receive Date: 20200617
  Receipt Date: 20200617
  Transmission Date: 20200714
  Serious: Yes (Disabling)
  Sender: FDA-Public Use
  Company Number: None

PATIENT
  Age: 66 Year
  Sex: Female
  Weight: 81 kg

DRUGS (4)
  1. BUSPIRONE [Concomitant]
     Active Substance: BUSPIRONE HYDROCHLORIDE
  2. NYSTATIN CREAM [Suspect]
     Active Substance: NYSTATIN
     Indication: GENITAL DISCOMFORT
     Route: 061
     Dates: start: 20200304, end: 20200308
  3. NYSTATIN PILL [Suspect]
     Active Substance: NYSTATIN
     Indication: GENITAL DISCOMFORT
     Dates: start: 20200304, end: 20200304
  4. CLONAZEPAM. [Concomitant]
     Active Substance: CLONAZEPAM

REACTIONS (1)
  - Oropharyngeal pain [None]

NARRATIVE: CASE EVENT DATE: 20200304
